FAERS Safety Report 17108509 (Version 6)
Quarter: 2020Q1

REPORT INFORMATION
  Report Type: Spontaneous
  Country: US (occurrence: US)
  Receive Date: 20191203
  Receipt Date: 20200326
  Transmission Date: 20200409
  Serious: Yes (Hospitalization)
  Sender: FDA-Public Use
  Company Number: US-ACTELION-A-NJ2019-198586

PATIENT
  Age: 51 Year
  Sex: Female
  Weight: 96.15 kg

DRUGS (3)
  1. VELETRI [Suspect]
     Active Substance: EPOPROSTENOL
     Dosage: 10 NG/KG, PER MIN
     Route: 042
  2. VELETRI [Suspect]
     Active Substance: EPOPROSTENOL
     Dosage: 16 NG/KG, PER MIN
     Route: 042
  3. VELETRI [Suspect]
     Active Substance: EPOPROSTENOL
     Indication: PULMONARY ARTERIAL HYPERTENSION
     Dosage: 7 NG/KG, PER MIN
     Route: 042

REACTIONS (14)
  - Catheter site rash [Unknown]
  - Catheter site infection [Unknown]
  - Arthralgia [Recovering/Resolving]
  - Back pain [Unknown]
  - Migraine [Unknown]
  - Catheter site erythema [Not Recovered/Not Resolved]
  - Catheter site swelling [Unknown]
  - Unevaluable event [Unknown]
  - Dyspnoea [Unknown]
  - Catheter site abscess [Unknown]
  - Joint swelling [Recovering/Resolving]
  - Headache [Recovering/Resolving]
  - Catheter site haemorrhage [Unknown]
  - Nausea [Recovering/Resolving]

NARRATIVE: CASE EVENT DATE: 201910
